FAERS Safety Report 16906150 (Version 1)
Quarter: 2019Q4

REPORT INFORMATION
  Report Type: Report from Study
  Country: US (occurrence: US)
  Receive Date: 20191011
  Receipt Date: 20191011
  Transmission Date: 20200122
  Serious: Yes (Other)
  Sender: FDA-Public Use
  Company Number: US-JNJFOC-20191008871

PATIENT

DRUGS (1)
  1. DOXORUBICIN HYDROCHLORIDE. [Suspect]
     Active Substance: DOXORUBICIN HYDROCHLORIDE
     Indication: SARCOMA METASTATIC
     Dosage: 37.5 MG/M IV DAY 5 AND DAY 6)
     Route: 042

REACTIONS (4)
  - Sarcoma metastatic [Unknown]
  - Neutropenia [Unknown]
  - Off label use [Unknown]
  - Product use in unapproved indication [Unknown]
